FAERS Safety Report 5678788-1 (Version None)
Quarter: 2008Q1

REPORT INFORMATION
  Report Type: 
  Country: None (occurrence: None)
  Receive Date: 20080324
  Receipt Date: 20080324
  Transmission Date: 20080703
  Serious: No
  Sender: FDA-Public Use
  Company Number: None

PATIENT
  Sex: Male
  Weight: 58.9676 kg

DRUGS (6)
  1. CELEXA [Suspect]
     Indication: ANXIETY
     Dosage: UP TO 80MG DAILY PO
     Route: 048
     Dates: start: 20011017, end: 20071015
  2. CELEXA [Suspect]
     Indication: CONFUSIONAL STATE
     Dosage: UP TO 80MG DAILY PO
     Route: 048
     Dates: start: 20011017, end: 20071015
  3. CELEXA [Suspect]
     Indication: DIZZINESS
     Dosage: UP TO 80MG DAILY PO
     Route: 048
     Dates: start: 20011017, end: 20071015
  4. CELEXA [Suspect]
     Indication: HEADACHE
     Dosage: UP TO 80MG DAILY PO
     Route: 048
     Dates: start: 20011017, end: 20071015
  5. PROVIGIL [Concomitant]
  6. ADDERALL 10 [Concomitant]

REACTIONS (21)
  - AGORAPHOBIA [None]
  - AMNESIA [None]
  - ANGER [None]
  - ANXIETY [None]
  - APPETITE DISORDER [None]
  - CONFUSIONAL STATE [None]
  - DEREALISATION [None]
  - DISSOCIATION [None]
  - DIZZINESS [None]
  - DYSPEPSIA [None]
  - EMOTIONAL DISORDER [None]
  - FATIGUE [None]
  - FLAT AFFECT [None]
  - GYNAECOMASTIA [None]
  - HEADACHE [None]
  - MENTAL DISORDER [None]
  - NAUSEA [None]
  - PARANOIA [None]
  - SLEEP DISORDER [None]
  - THINKING ABNORMAL [None]
  - WITHDRAWAL SYNDROME [None]
